FAERS Safety Report 14628288 (Version 1)
Quarter: 2018Q1

REPORT INFORMATION
  Report Type: Spontaneous
  Country: US (occurrence: US)
  Receive Date: 20180312
  Receipt Date: 20180312
  Transmission Date: 20180509
  Serious: No
  Sender: FDA-Public Use
  Company Number: US-ALLERGAN-1755965US

PATIENT
  Age: 68 Year
  Sex: Female

DRUGS (2)
  1. ESTRACE [Suspect]
     Active Substance: ESTRADIOL
     Indication: VULVOVAGINAL DRYNESS
     Dosage: FINGERTIP AMOUNT FOR 7 DAYS, QD
     Route: 067
     Dates: start: 20170926, end: 20170928
  2. ESTRACE [Suspect]
     Active Substance: ESTRADIOL
     Dosage: FINGERTIP AMOUNT FOR 7 DAYS, BID
     Route: 067
     Dates: start: 20170926, end: 20170928

REACTIONS (1)
  - Vulvovaginal burning sensation [Recovered/Resolved]

NARRATIVE: CASE EVENT DATE: 20170927
